FAERS Safety Report 11445173 (Version 2)
Quarter: 2015Q3

REPORT INFORMATION
  Report Type: Report from Study
  Country: JP (occurrence: JP)
  Receive Date: 20150902
  Receipt Date: 20150916
  Transmission Date: 20151125
  Serious: Yes (Hospitalization)
  Sender: FDA-Public Use
  Company Number: JP-ROCHE-1629075

PATIENT
  Age: 69 Year
  Sex: Male
  Weight: 79 kg

DRUGS (10)
  1. RANIBIZUMAB [Suspect]
     Active Substance: RANIBIZUMAB
     Route: 065
     Dates: start: 20150626
  2. BLINDED VERTEPORFIN PDT [Suspect]
     Active Substance: VERTEPORFIN
     Route: 065
     Dates: start: 20141226
  3. BLINDED VERTEPORFIN PDT [Suspect]
     Active Substance: VERTEPORFIN
     Route: 065
     Dates: start: 20150130
  4. DIOVAN [Concomitant]
     Active Substance: VALSARTAN
     Route: 065
     Dates: start: 20070811
  5. RANIBIZUMAB [Suspect]
     Active Substance: RANIBIZUMAB
     Route: 065
     Dates: start: 20150130
  6. BLINDED VERTEPORFIN PDT [Suspect]
     Active Substance: VERTEPORFIN
     Route: 065
     Dates: start: 20150626
  7. NIFEDIPINE. [Concomitant]
     Active Substance: NIFEDIPINE
     Route: 065
     Dates: start: 20070811
  8. RANIBIZUMAB [Suspect]
     Active Substance: RANIBIZUMAB
     Indication: POLYPOIDAL CHOROIDAL VASCULOPATHY
     Dosage: DATE OF LAST DOSE PRIOR TO SAE: 26/JUN/2015
     Route: 065
     Dates: start: 20141128
  9. RANIBIZUMAB [Suspect]
     Active Substance: RANIBIZUMAB
     Route: 065
     Dates: start: 20141226
  10. BLINDED VERTEPORFIN PDT [Suspect]
     Active Substance: VERTEPORFIN
     Indication: POLYPOIDAL CHOROIDAL VASCULOPATHY
     Route: 065
     Dates: start: 20141128

REACTIONS (1)
  - Acute myocardial infarction [Recovered/Resolved]

NARRATIVE: CASE EVENT DATE: 20150818
